FAERS Safety Report 6588335-8 (Version None)
Quarter: 2010Q1

REPORT INFORMATION
  Report Type: 
  Country: None (occurrence: None)
  Receive Date: 20100218
  Receipt Date: 20100205
  Transmission Date: 20100710
  Serious: Yes (Other)
  Sender: FDA-Public Use
  Company Number: GB-ROCHE-677781

PATIENT
  Sex: Female
  Weight: 63 kg

DRUGS (2)
  1. ROACCUTANE [Suspect]
     Indication: ACNE
     Route: 048
     Dates: start: 20091214, end: 20091231
  2. CILEST [Suspect]
     Indication: ACNE
     Dosage: DOSE REPORTED AS 1 TABLET DAILY
     Route: 048
     Dates: start: 20091214, end: 20091228

REACTIONS (1)
  - UVEITIS [None]
